FAERS Safety Report 10088036 (Version 2)
Quarter: 2014Q2

REPORT INFORMATION
  Report Type: Spontaneous
  Country: GB (occurrence: GB)
  Receive Date: 20140420
  Receipt Date: 20140423
  Transmission Date: 20141212
  Serious: Yes (Other)
  Sender: FDA-Public Use
  Company Number: GB-009507513-1404GBR009683

PATIENT
  Age: 69 Year
  Sex: Female
  Weight: 58 kg

DRUGS (2)
  1. ALENDRONATE SODIUM [Suspect]
     Indication: OSTEOPOROSIS POSTMENOPAUSAL
     Dosage: 70 MG, UNK
     Route: 048
     Dates: start: 20140323, end: 20140323
  2. ANASTROZOLE [Concomitant]
     Indication: BREAST CANCER

REACTIONS (3)
  - Hypoaesthesia oral [Recovered/Resolved]
  - Dizziness [Recovering/Resolving]
  - Vertigo [Recovered/Resolved]
